FAERS Safety Report 14892758 (Version 4)
Quarter: 2018Q2

REPORT INFORMATION
  Report Type: Report from Study
  Country: ES (occurrence: ES)
  Receive Date: 20180514
  Receipt Date: 20180525
  Transmission Date: 20180711
  Serious: Yes (Hospitalization)
  Sender: FDA-Public Use
  Company Number: ES-PFIZER INC-2018193093

PATIENT
  Age: 85 Year
  Sex: Female

DRUGS (5)
  1. HEMICRANEAL /01771901/ [Interacting]
     Active Substance: ACETAMINOPHEN\BELLADONNA LEAF\CAFFEINE\ERGOTAMINE TARTRATE
     Indication: SUICIDE ATTEMPT
     Dosage: UNK, X 20
     Route: 048
     Dates: start: 20170825, end: 20170825
  2. LORAZEPAM. [Suspect]
     Active Substance: LORAZEPAM
     Indication: SUICIDE ATTEMPT
     Dosage: 67.5 MG, SINGLE; 1,5 MG X 45
     Route: 048
     Dates: start: 20170825, end: 20170825
  3. STILNOX [Interacting]
     Active Substance: ZOLPIDEM TARTRATE
     Indication: SUICIDE ATTEMPT
     Dosage: 150 MG, SINGLE; 10MG X 15
     Route: 048
     Dates: start: 20170825, end: 20170825
  4. NOLOTIL /06276702/ [Interacting]
     Active Substance: METAMIZOLE MAGNESIUM
     Dosage: 5.75 G, SINGLE; X 10
     Route: 048
     Dates: start: 20170825, end: 20170825
  5. LORMETAZEPAM [Interacting]
     Active Substance: LORMETAZEPAM
     Indication: SUICIDE ATTEMPT
     Dosage: 25 MG, SINGLE; 1MG X 25
     Route: 048
     Dates: start: 20170825, end: 20170825

REACTIONS (6)
  - Drug interaction [Recovered/Resolved]
  - Inappropriate antidiuretic hormone secretion [Recovered/Resolved]
  - Hypocoagulable state [Recovered/Resolved]
  - Depressed level of consciousness [Recovered/Resolved]
  - Aspiration [Recovered/Resolved]
  - Intentional overdose [Unknown]

NARRATIVE: CASE EVENT DATE: 20170825
